FAERS Safety Report 17950089 (Version 1)
Quarter: 2020Q2

REPORT INFORMATION
  Report Type: Spontaneous
  Country: US (occurrence: US)
  Receive Date: 20200626
  Receipt Date: 20200626
  Transmission Date: 20200714
  Serious: Yes (Hospitalization)
  Sender: FDA-Public Use
  Company Number: None

PATIENT
  Age: 22 Year
  Sex: Male

DRUGS (24)
  1. FUROSEMIDE. [Concomitant]
     Active Substance: FUROSEMIDE
  2. LIDOCAINE. [Concomitant]
     Active Substance: LIDOCAINE
  3. MONTELUKAST [Concomitant]
     Active Substance: MONTELUKAST SODIUM
  4. AZITHROMYCIN ANHYDROUS. [Concomitant]
     Active Substance: AZITHROMYCIN ANHYDROUS
  5. FERROUS SULF [Concomitant]
     Active Substance: FERROUS SULFATE
  6. LEVETIRACETA [Concomitant]
     Active Substance: LEVETIRACETAM
  7. TOBRAMYCIN NEB 300MG/5ML/20ML [Suspect]
     Active Substance: TOBRAMYCIN
     Indication: HYPERCAPNIA
     Dosage: ?          OTHER DOSE:1 VIAL;OTHER ROUTE:INH - QO 28 D?
     Dates: start: 20190126
  8. CEFUROXIME. [Concomitant]
     Active Substance: CEFUROXIME
  9. LEVALBUTEROL NEB [Concomitant]
  10. NYSTOP [Concomitant]
     Active Substance: NYSTATIN
  11. CAYSTON [Concomitant]
     Active Substance: AZTREONAM
  12. IPRATROPIUM SOL [Concomitant]
  13. LORAZEPAM. [Concomitant]
     Active Substance: LORAZEPAM
  14. NEXIUM [Concomitant]
     Active Substance: ESOMEPRAZOLE MAGNESIUM
  15. SSD CRE [Concomitant]
  16. GLYCOPYRROL [Concomitant]
  17. HYOSCYAMINE. [Concomitant]
     Active Substance: HYOSCYAMINE
  18. NEO/POLY/HC [Concomitant]
     Active Substance: HYDROCORTISONE\NEOMYCIN\POLYMYXIN B SULFATE
  19. NYSTATIN. [Concomitant]
     Active Substance: NYSTATIN
  20. POLYETH GLYC [Concomitant]
     Active Substance: POLYETHYLENE GLYCOLS
  21. VIMPAT [Concomitant]
     Active Substance: LACOSAMIDE
  22. TOBRAMYCIN NEB 300MG/5ML/20ML [Suspect]
     Active Substance: TOBRAMYCIN
     Indication: CHRONIC RESPIRATORY FAILURE
     Dosage: ?          OTHER DOSE:1 VIAL;OTHER ROUTE:INH - QO 28 D?
     Dates: start: 20190126
  23. METOCLOPRAM [Concomitant]
     Active Substance: METOCLOPRAMIDE
  24. PHENOBARB [Concomitant]
     Active Substance: PHENOBARBITAL SODIUM

REACTIONS (2)
  - Respiratory disorder [None]
  - Sepsis [None]

NARRATIVE: CASE EVENT DATE: 20200602
